FAERS Safety Report 6235687-4 (Version None)
Quarter: 2009Q2

REPORT INFORMATION
  Report Type: 
  Country: None (occurrence: None)
  Receive Date: 20090618
  Receipt Date: 20090608
  Transmission Date: 20091009
  Serious: Yes (Hospitalization, Other)
  Sender: FDA-Public Use
  Company Number: CN-ELI_LILLY_AND_COMPANY-CN200905004430

PATIENT
  Age: 63 Year
  Sex: Male
  Weight: 60 kg

DRUGS (2)
  1. HUMALOG MIX 75/25 [Suspect]
     Indication: DIABETES MELLITUS
     Dosage: 33 IU, DAILY (1/D)
     Route: 058
     Dates: start: 20090505, end: 20090501
  2. HUMALOG MIX 75/25 [Suspect]
     Dosage: 33 IU, DAILY (1/D)
     Route: 058
     Dates: start: 20090520

REACTIONS (3)
  - BLOOD GLUCOSE INCREASED [None]
  - KETOACIDOSIS [None]
  - VOMITING [None]
